FAERS Safety Report 17777191 (Version 1)
Quarter: 2020Q2

REPORT INFORMATION
  Report Type: Spontaneous
  Country: HU (occurrence: HU)
  Receive Date: 20200513
  Receipt Date: 20200513
  Transmission Date: 20200714
  Serious: Yes (Other)
  Sender: FDA-Public Use
  Company Number: HU-SA-2020SA118455

PATIENT
  Age: 39 Year
  Sex: Female

DRUGS (1)
  1. TERIFLUNOMIDE. [Suspect]
     Active Substance: TERIFLUNOMIDE
     Indication: RELAPSING-REMITTING MULTIPLE SCLEROSIS
     Dosage: 14 MG, QD, MG PER OS
     Route: 048

REACTIONS (8)
  - Abscess intestinal [Recovering/Resolving]
  - Cryptitis [Recovering/Resolving]
  - Enterocolitis [Recovering/Resolving]
  - Abdominal pain [Recovered/Resolved]
  - Ileal ulcer [Recovering/Resolving]
  - Diarrhoea [Recovered/Resolved]
  - Apoptotic colonopathy [Recovering/Resolving]
  - Clostridium difficile infection [Unknown]
